FAERS Safety Report 12799247 (Version 1)
Quarter: 2016Q3

REPORT INFORMATION
  Report Type: Spontaneous
  Country: US (occurrence: US)
  Receive Date: 20160930
  Receipt Date: 20160930
  Transmission Date: 20161109
  Serious: Yes (Other)
  Sender: FDA-Public Use
  Company Number: US-SA-2016SA177267

PATIENT
  Sex: Male

DRUGS (2)
  1. ALLEGRA [Suspect]
     Active Substance: FEXOFENADINE HYDROCHLORIDE
     Dosage: START DATE : 05 SEPTEMBER, STOP DATE 08SEPTEMBER?ON SEPT. 5,6,7,8
     Route: 048
     Dates: start: 20160905, end: 20160908
  2. ALLEGRA [Suspect]
     Active Substance: FEXOFENADINE HYDROCHLORIDE
     Dosage: START DATE : 12 SEPTEMBER, STOP DATE 14SEPTEMBER?ON SEPT.12, 13,14.
     Route: 048
     Dates: start: 20160912, end: 20160914

REACTIONS (3)
  - Agitation [Recovering/Resolving]
  - Mania [Recovering/Resolving]
  - Seizure [Recovering/Resolving]

NARRATIVE: CASE EVENT DATE: 20160920
